FAERS Safety Report 15302083 (Version 1)
Quarter: 2018Q3

REPORT INFORMATION
  Report Type: Spontaneous
  Country: US (occurrence: US)
  Receive Date: 20180821
  Receipt Date: 20180821
  Transmission Date: 20181010
  Serious: No
  Sender: FDA-Public Use
  Company Number: US-TEVA-2018-US-946329

PATIENT

DRUGS (1)
  1. ESTRADIOL. [Suspect]
     Active Substance: ESTRADIOL
     Indication: HORMONE REPLACEMENT THERAPY
     Route: 065

REACTIONS (7)
  - Dizziness [Unknown]
  - Drug ineffective [Unknown]
  - Headache [Unknown]
  - Balance disorder [Unknown]
  - Pruritus [Unknown]
  - Fall [Unknown]
  - Insomnia [Unknown]
